FAERS Safety Report 24593749 (Version 1)
Quarter: 2024Q4

REPORT INFORMATION
  Report Type: Spontaneous
  Country: US (occurrence: None)
  Receive Date: 20241108
  Receipt Date: 20241108
  Transmission Date: 20250114
  Serious: Yes (Hospitalization)
  Sender: Public
  Company Number: None

PATIENT
  Sex: Male

DRUGS (4)
  1. VEMLIDY [Suspect]
     Active Substance: TENOFOVIR ALAFENAMIDE FUMARATE
     Indication: Liver transplant failure
     Dosage: FREQUENCY : DAILY;?
     Route: 048
     Dates: start: 20240715
  2. PROGRAF [Concomitant]
     Active Substance: TACROLIMUS
  3. ACROLIMUS [Concomitant]
  4. ACROLIMUS A [Concomitant]

REACTIONS (3)
  - Pyrexia [None]
  - Infection [None]
  - Therapy interrupted [None]
